FAERS Safety Report 18432701 (Version 1)
Quarter: 2020Q4

REPORT INFORMATION
  Report Type: Spontaneous
  Country: US (occurrence: US)
  Receive Date: 20201027
  Receipt Date: 20201027
  Transmission Date: 20210114
  Serious: Yes (Hospitalization, Other)
  Sender: FDA-Public Use
  Company Number: US-PURDUE-USA-2020-0171088

PATIENT
  Sex: Male

DRUGS (2)
  1. MS CONTIN [Suspect]
     Active Substance: MORPHINE SULFATE
     Indication: PAIN
     Route: 048
  2. OXYCONTIN [Suspect]
     Active Substance: OXYCODONE HYDROCHLORIDE
     Indication: PAIN
     Route: 048

REACTIONS (8)
  - Ataxia [Unknown]
  - Adverse drug reaction [Not Recovered/Not Resolved]
  - Loss of consciousness [Unknown]
  - Hypopnoea [Unknown]
  - Drug dependence [Unknown]
  - Accident [Unknown]
  - Overdose [Unknown]
  - Coordination abnormal [Unknown]
